FAERS Safety Report 6618735-9 (Version None)
Quarter: 2010Q1

REPORT INFORMATION
  Report Type: 
  Country: None (occurrence: None)
  Receive Date: 20100308
  Receipt Date: 20100222
  Transmission Date: 20100710
  Serious: Yes (Hospitalization)
  Sender: FDA-Public Use
  Company Number: US-ELI_LILLY_AND_COMPANY-US201002006726

PATIENT
  Sex: Female

DRUGS (10)
  1. FORTEO [Suspect]
     Indication: OSTEOPOROSIS
     Dosage: 20 UG, DAILY (1/D)
     Dates: start: 20090101, end: 20090801
  2. ASPIRIN [Concomitant]
  3. COUMADIN [Concomitant]
  4. METOPROLOL TARTRATE [Concomitant]
  5. ZOCOR [Concomitant]
  6. NEURONTIN [Concomitant]
     Indication: PAIN
  7. LORTAB [Concomitant]
     Indication: ARTHRALGIA
  8. LISINOPRIL [Concomitant]
  9. DIGOXIN [Concomitant]
  10. NIOSPAN [Concomitant]

REACTIONS (4)
  - BLOOD PRESSURE DECREASED [None]
  - IMPLANTABLE DEFIBRILLATOR INSERTION [None]
  - PNEUMONIA [None]
  - PYREXIA [None]
